FAERS Safety Report 6305540-6 (Version None)
Quarter: 2009Q3

REPORT INFORMATION
  Report Type: 
  Country: None (occurrence: None)
  Receive Date: 20090807
  Receipt Date: 20090804
  Transmission Date: 20100115
  Serious: Yes (Life-Threatening, Hospitalization, Disabling)
  Sender: FDA-Public Use
  Company Number: WAES 0903FRA00103

PATIENT
  Age: 65 Year
  Sex: Male

DRUGS (23)
  1. ZOLINZA [Suspect]
     Indication: NON-SMALL CELL LUNG CANCER
     Dosage: 400 MG/DAILY PO
     Route: 048
     Dates: start: 20090221, end: 20090302
  2. ZOLINZA [Suspect]
     Indication: NON-SMALL CELL LUNG CANCER
     Dosage: 400 MG/DAILY PO
     Route: 048
     Dates: start: 20090316, end: 20090317
  3. ZOLINZA [Suspect]
     Indication: NON-SMALL CELL LUNG CANCER
     Dosage: 400 MG/DAILY PO
     Route: 048
     Dates: start: 20090320
  4. CISPLATIN [Suspect]
     Indication: NON-SMALL CELL LUNG CANCER
     Dosage: 75 MG/M2 /DAILY IV
     Route: 042
     Dates: start: 20090223, end: 20090223
  5. CISPLATIN [Suspect]
     Indication: NON-SMALL CELL LUNG CANCER
     Dosage: 75 MG/M2 /DAILY IV
     Route: 042
     Dates: start: 20090320, end: 20090320
  6. GEMCITABINE [Suspect]
     Indication: NON-SMALL CELL LUNG CANCER
     Dosage: 1250 MG/M2 /DAILY IV
     Route: 042
     Dates: start: 20090223, end: 20090223
  7. GEMCITABINE [Suspect]
     Indication: NON-SMALL CELL LUNG CANCER
     Dosage: 1250 MG/M2 /DAILY IV
     Route: 042
     Dates: start: 20090320, end: 20090320
  8. NOROXIN [Suspect]
     Dosage: PO
     Route: 048
     Dates: start: 20090322
  9. EMEND [Concomitant]
  10. AMLODIPINE BESYLATE [Concomitant]
  11. AMPHOTERICIN B [Concomitant]
  12. BUFLOMEDIL [Concomitant]
  13. ENOXAPARIN SODIUM [Concomitant]
  14. FUROSEMIDE [Concomitant]
  15. GLICLAZIDE [Concomitant]
  16. INSULIN [Concomitant]
  17. METHYLPREDNISOLONE 4MG TAB [Concomitant]
  18. NEBIVOLOL [Concomitant]
  19. ONDANSETRON HYDROCHLORIDE [Concomitant]
  20. PANTOPRAZOLE SODIUM [Concomitant]
  21. PRAVASTATIN SODIUM [Concomitant]
  22. PREDNISOLONE [Concomitant]
  23. RAMIPRIL [Concomitant]

REACTIONS (9)
  - DIALYSIS [None]
  - DIARRHOEA [None]
  - DISEASE PROGRESSION [None]
  - NAUSEA [None]
  - NEUTROPENIA [None]
  - PLEURISY [None]
  - RENAL FAILURE [None]
  - RESPIRATORY FAILURE [None]
  - VOMITING [None]
